FAERS Safety Report 13784382 (Version 1)
Quarter: 2017Q3

REPORT INFORMATION
  Report Type: Spontaneous
  Country: MX (occurrence: MX)
  Receive Date: 20170724
  Receipt Date: 20170724
  Transmission Date: 20171127
  Serious: Yes (Other)
  Sender: FDA-Public Use
  Company Number: MX-BAUSCH-BL-2017-022146

PATIENT
  Age: 45 Year
  Sex: Male

DRUGS (1)
  1. ATROPINE. [Suspect]
     Active Substance: ATROPINE
     Indication: CATARACT CONGENITAL
     Route: 061

REACTIONS (2)
  - Ocular hypertension [Recovering/Resolving]
  - Pigment dispersion syndrome [Recovering/Resolving]
